FAERS Safety Report 7014490-1 (Version None)
Quarter: 2010Q3

REPORT INFORMATION
  Report Type: 
  Country: None (occurrence: None)
  Receive Date: 20100927
  Receipt Date: 20100913
  Transmission Date: 20110219
  Serious: Yes (Other)
  Sender: FDA-Public Use
  Company Number: US-ELI_LILLY_AND_COMPANY-US201009004086

PATIENT
  Sex: Female

DRUGS (12)
  1. FORTEO [Suspect]
     Indication: OSTEOPOROSIS
     Dosage: 20 UG, DAILY (1/D)
     Route: 065
  2. LEVOTHYROXINE SODIUM [Concomitant]
  3. PRILOSEC [Concomitant]
  4. VOLTAREN                                /SCH/ [Concomitant]
  5. HYDROCODONE [Concomitant]
  6. LIPITOR [Concomitant]
  7. FISH OIL [Concomitant]
  8. ASCORBIC ACID [Concomitant]
  9. CLARITIN [Concomitant]
  10. FLONASE [Concomitant]
  11. COMBIGAN [Concomitant]
  12. LUMIGAN [Concomitant]

REACTIONS (5)
  - ASTHENIA [None]
  - FACIAL BONES FRACTURE [None]
  - FALL [None]
  - MALAISE [None]
  - NAUSEA [None]
